FAERS Safety Report 24126799 (Version 1)
Quarter: 2024Q3

REPORT INFORMATION
  Report Type: Spontaneous
  Country: US (occurrence: US)
  Receive Date: 20240723
  Receipt Date: 20240723
  Transmission Date: 20241017
  Serious: No
  Sender: MERCK
  Company Number: US-009507513-2406USA007923

PATIENT
  Age: 70 Year
  Sex: Female

DRUGS (3)
  1. CANCIDAS [Suspect]
     Active Substance: CASPOFUNGIN ACETATE
     Indication: Scedosporium infection
  2. VORICONAZOLE [Concomitant]
     Active Substance: VORICONAZOLE
     Indication: Scedosporium infection
     Dosage: UNK
  3. TERBINAFINE [Concomitant]
     Active Substance: TERBINAFINE
     Indication: Scedosporium infection

REACTIONS (1)
  - Product use in unapproved indication [Unknown]
